FAERS Safety Report 4355316-4 (Version None)
Quarter: 2004Q2

REPORT INFORMATION
  Report Type: 
  Country: None (occurrence: None)
  Receive Date: 20040504
  Receipt Date: 20030716
  Transmission Date: 20050107
  Serious: Yes (Disabling)
  Sender: FDA-Public Use
  Company Number: 200300649

PATIENT
  Age: 78 Year
  Sex: Male

DRUGS (3)
  1. PEPCID AC [Suspect]
     Indication: DYSPEPSIA
     Dosage: 10 MG DAILY PO
     Route: 048
     Dates: start: 20030607, end: 20030609
  2. METOPROLOL [Concomitant]
  3. GLYBURIDE [Concomitant]

REACTIONS (7)
  - BLOOD GLUCOSE DECREASED [None]
  - CLAVICLE FRACTURE [None]
  - DYSGEUSIA [None]
  - FALL [None]
  - TONGUE DISORDER [None]
  - UPPER LIMB FRACTURE [None]
  - VOMITING [None]
